FAERS Safety Report 23585881 (Version 2)
Quarter: 2024Q4

REPORT INFORMATION
  Report Type: Spontaneous
  Country: FR (occurrence: FR)
  Receive Date: 20240301
  Receipt Date: 20241001
  Transmission Date: 20250115
  Serious: Yes (Other)
  Sender: REGENERON
  Company Number: FR-SA-SAC20240228001381

PATIENT
  Age: 77 Year
  Sex: Male

DRUGS (2)
  1. PRALUENT [Suspect]
     Active Substance: ALIROCUMAB
     Indication: Cardiac arrest
     Dosage: 300 UNK
     Route: 058
     Dates: start: 20230823
  2. PRALUENT [Suspect]
     Active Substance: ALIROCUMAB
     Indication: Myocardial ischaemia

REACTIONS (7)
  - Neuropathy peripheral [Recovered/Resolved]
  - Burning sensation [Recovered/Resolved]
  - Headache [Unknown]
  - Abdominal pain [Unknown]
  - Feeling drunk [Unknown]
  - Pain in extremity [Unknown]
  - Muscle spasms [Unknown]
